FAERS Safety Report 21897084 (Version 1)
Quarter: 2023Q1

REPORT INFORMATION
  Report Type: Spontaneous
  Country: US (occurrence: None)
  Receive Date: 20230123
  Receipt Date: 20230123
  Transmission Date: 20230417
  Serious: Yes (Other)
  Sender: FDA-Public Use
  Company Number: US-Hikma Pharmaceuticals USA Inc.-US-H14001-23-00185

PATIENT
  Sex: Female

DRUGS (4)
  1. PREDNISONE [Suspect]
     Active Substance: PREDNISONE
     Indication: Product used for unknown indication
     Dosage: UNKNOWN
     Route: 065
  2. GABAPENTIN [Suspect]
     Active Substance: GABAPENTIN
     Indication: Product used for unknown indication
     Route: 065
  3. LUPKYNIS [Suspect]
     Active Substance: VOCLOSPORIN
     Indication: Lupus nephritis
     Dosage: 23.7MG EVERY MORNING AND 15.8MG EVERY EVENING
     Route: 048
     Dates: start: 20210522, end: 20221031
  4. LUPKYNIS [Suspect]
     Active Substance: VOCLOSPORIN
     Indication: Haematuria

REACTIONS (4)
  - Visual impairment [Unknown]
  - Eye swelling [Unknown]
  - Retinal detachment [Unknown]
  - Proteinuria [Unknown]
